FAERS Safety Report 12403853 (Version 5)
Quarter: 2016Q3

REPORT INFORMATION
  Report Type: Spontaneous
  Country: US (occurrence: US)
  Receive Date: 20160525
  Receipt Date: 20160707
  Transmission Date: 20161109
  Serious: Yes (Hospitalization)
  Sender: FDA-Public Use
  Company Number: US-UNITED THERAPEUTICS-UNT-2016-008170

PATIENT
  Age: 70 Year
  Sex: Female
  Weight: 68.48 kg

DRUGS (1)
  1. ORENITRAM [Suspect]
     Active Substance: TREPROSTINIL
     Indication: PULMONARY ARTERIAL HYPERTENSION
     Dosage: 0.125 MG, BID
     Route: 048
     Dates: start: 20160503

REACTIONS (9)
  - Nausea [Unknown]
  - Fatigue [Unknown]
  - Asthenia [Unknown]
  - Headache [Unknown]
  - Dyspnoea [Unknown]
  - Blood pressure difference of extremities [Unknown]
  - Drug dose omission [Unknown]
  - Tremor [Unknown]
  - Respiratory distress [Unknown]

NARRATIVE: CASE EVENT DATE: 201605
